FAERS Safety Report 16637675 (Version 1)
Quarter: 2019Q3

REPORT INFORMATION
  Report Type: Spontaneous
  Country: US (occurrence: US)
  Receive Date: 20190726
  Receipt Date: 20190726
  Transmission Date: 20191004
  Serious: Yes (Other)
  Sender: FDA-Public Use
  Company Number: US-ARRAY-2019-06006

PATIENT

DRUGS (2)
  1. MEKTOVI [Suspect]
     Active Substance: BINIMETINIB
     Indication: METASTASES TO LUNG
     Dosage: 30 MG, BID
     Route: 048
  2. BRAFTOVI [Suspect]
     Active Substance: ENCORAFENIB
     Indication: METASTASES TO LUNG
     Dosage: 300 MG, QD
     Route: 048

REACTIONS (2)
  - Renal haemorrhage [Unknown]
  - Off label use [Unknown]
